FAERS Safety Report 25422979 (Version 1)
Quarter: 2025Q2

REPORT INFORMATION
  Report Type: Spontaneous
  Country: ES (occurrence: ES)
  Receive Date: 20250611
  Receipt Date: 20250611
  Transmission Date: 20250716
  Serious: Yes (Other)
  Sender: PFIZER
  Company Number: None

PATIENT
  Age: 66 Year
  Sex: Female
  Weight: 108 kg

DRUGS (14)
  1. CLINDAMYCIN HYDROCHLORIDE [Suspect]
     Active Substance: CLINDAMYCIN HYDROCHLORIDE
     Indication: Cellulitis
     Dosage: 150 MG, 3X/DAY (EVERY 8 HOURS)
     Route: 048
     Dates: start: 20250519, end: 20250525
  2. EZETIMIBE\ROSUVASTATIN ZINC [Concomitant]
     Active Substance: EZETIMIBE\ROSUVASTATIN ZINC
     Indication: Type 2 diabetes mellitus
     Dosage: 1 CAPSULE, 1X/DAY (BEFORE DINNER)
     Route: 048
     Dates: start: 20220119
  3. ASPIRIN [Concomitant]
     Active Substance: ASPIRIN
     Indication: Type 2 diabetes mellitus
     Route: 048
     Dates: start: 20220119
  4. AMLODIPINE BESYLATE\HYDROCHLOROTHIAZIDE\OLMESARTAN MEDOXOMIL [Concomitant]
     Active Substance: AMLODIPINE BESYLATE\HYDROCHLOROTHIAZIDE\OLMESARTAN MEDOXOMIL
     Indication: Angina pectoris
     Dosage: 1 TABLET, 1X/DAY
     Route: 048
     Dates: start: 20220128
  5. BISOPROLOL FUMARATE [Concomitant]
     Active Substance: BISOPROLOL FUMARATE
     Indication: Angina pectoris
     Dosage: 2.5 MG, 1X/DAY (AT BREAKFAST)
     Route: 048
     Dates: start: 20220128
  6. METHOTREXATE [Concomitant]
     Active Substance: METHOTREXATE
     Indication: Osteoarthritis
     Dosage: 12.5 MG, WEEKLY (EVERY 7 DAYS)
     Route: 048
     Dates: start: 20230331
  7. SYNJARDY [Concomitant]
     Active Substance: EMPAGLIFLOZIN\METFORMIN HYDROCHLORIDE
     Indication: Type 2 diabetes mellitus
     Dosage: 1 TABLET, 2X/DAY (EVERY 12 HOURS)
     Route: 048
     Dates: start: 20231027
  8. ALLOPURINOL [Concomitant]
     Active Substance: ALLOPURINOL
     Indication: Rheumatoid arthritis
     Dosage: 100 MG, 1X/DAY (AT BREAKFAST)
     Route: 048
     Dates: start: 20231028
  9. OMEPRAZOL TEVA [OMEPRAZOLE] [Concomitant]
     Indication: Rheumatoid arthritis
     Dosage: 40 MG, 1X/DAY (AT BREAKFAST)
     Route: 048
     Dates: start: 20240308
  10. VANIQA [EFLORNITHINE] [Concomitant]
     Indication: Hirsutism
     Dosage: 1 APPLICATION, 1X/DAY AT NIGHT
     Route: 061
     Dates: start: 20240319
  11. LEUCOVORIN CALCIUM [Concomitant]
     Active Substance: LEUCOVORIN CALCIUM
     Indication: Rheumatoid arthritis
     Dosage: 1 TABLET, WEEKLY (EVERY 7 DAYS)
     Route: 048
     Dates: start: 20240405
  12. CALCIFEDIOL [Concomitant]
     Active Substance: CALCIFEDIOL
     Indication: Vitamin D deficiency
     Route: 048
     Dates: start: 20240405
  13. PARACETAMOL KERN [Concomitant]
     Indication: Rheumatoid arthritis
     Dosage: 1 G, 3X/DAY (AT BREAKFAST, LUNCH AND DINNER)
     Route: 048
     Dates: start: 20250203
  14. PEITEL [Concomitant]
     Indication: Dermatitis
     Dosage: 1 APPLICATION, DAILY
     Route: 061
     Dates: start: 20250424

REACTIONS (3)
  - Dysphagia [Recovered/Resolved]
  - Abdominal pain upper [Recovered/Resolved]
  - Off label use [Unknown]

NARRATIVE: CASE EVENT DATE: 20250519
